FAERS Safety Report 15476469 (Version 1)
Quarter: 2018Q4

REPORT INFORMATION
  Report Type: Spontaneous
  Country: US (occurrence: US)
  Receive Date: 20181009
  Receipt Date: 20181009
  Transmission Date: 20190205
  Serious: Yes (Hospitalization, Other)
  Sender: FDA-Public Use
  Company Number: PHEH2018US041460

PATIENT
  Age: 11 Year
  Sex: Male
  Weight: 34.3 kg

DRUGS (1)
  1. KYMRIAH [Suspect]
     Active Substance: TISAGENLECLEUCEL
     Indication: ACUTE LYMPHOCYTIC LEUKAEMIA
     Dosage: 2X10^6 CAR + VIABLE T-CELLS/KG, ONCE/SINGLE
     Route: 042
     Dates: start: 20180501

REACTIONS (3)
  - Neurotoxicity [Recovered/Resolved]
  - Febrile neutropenia [Unknown]
  - Cytokine release syndrome [Unknown]
